FAERS Safety Report 7437518-3 (Version None)
Quarter: 2011Q2

REPORT INFORMATION
  Report Type: 
  Country: None (occurrence: None)
  Receive Date: 20110426
  Receipt Date: 20110422
  Transmission Date: 20111010
  Serious: Yes (Death)
  Sender: FDA-Public Use
  Company Number: US-PFIZER INC-2011088653

PATIENT
  Sex: Female

DRUGS (1)
  1. GENOTROPIN [Suspect]
     Indication: DWARFISM
     Dosage: 0.9 MG, 1X/DAY
     Route: 058
     Dates: start: 20080623

REACTIONS (1)
  - DEATH [None]
